FAERS Safety Report 25029335 (Version 1)
Quarter: 2025Q1

REPORT INFORMATION
  Report Type: Report from Study
  Country: GB (occurrence: GB)
  Receive Date: 20250303
  Receipt Date: 20250303
  Transmission Date: 20250408
  Serious: Yes (Death, Other)
  Sender: TAKEDA
  Company Number: GB-TAKEDA-2021TUS081352

PATIENT
  Sex: Female

DRUGS (3)
  1. VEDOLIZUMAB [Suspect]
     Active Substance: VEDOLIZUMAB
     Indication: Colitis ulcerative
  2. VEDOLIZUMAB [Suspect]
     Active Substance: VEDOLIZUMAB
     Indication: Colitis ulcerative
     Dosage: 108 MILLIGRAM, Q2WEEKS
  3. VEDOLIZUMAB [Suspect]
     Active Substance: VEDOLIZUMAB

REACTIONS (10)
  - Death [Fatal]
  - Drug ineffective [Unknown]
  - Head injury [Unknown]
  - Fall [Unknown]
  - Weight decreased [Unknown]
  - Malaise [Unknown]
  - Bedridden [Unknown]
  - Off label use [Unknown]
  - Abdominal pain [Unknown]
  - Flatulence [Unknown]
